FAERS Safety Report 15472828 (Version 1)
Quarter: 2018Q4

REPORT INFORMATION
  Report Type: Spontaneous
  Country: US (occurrence: US)
  Receive Date: 20181008
  Receipt Date: 20181008
  Transmission Date: 20190205
  Serious: No
  Sender: FDA-Public Use
  Company Number: US-PFIZER INC-2018399499

PATIENT
  Age: 40 Year
  Sex: Male

DRUGS (1)
  1. CALAN [Suspect]
     Active Substance: VERAPAMIL HYDROCHLORIDE
     Indication: MIGRAINE
     Dosage: UNK

REACTIONS (1)
  - Drug effective for unapproved indication [Unknown]
